FAERS Safety Report 9262885 (Version 1)
Quarter: 2013Q2

REPORT INFORMATION
  Report Type: Report from Study
  Country: US (occurrence: US)
  Receive Date: 20130430
  Receipt Date: 20130430
  Transmission Date: 20140414
  Serious: Yes (Other)
  Sender: FDA-Public Use
  Company Number: PHEH2013US009471

PATIENT
  Sex: Male

DRUGS (1)
  1. GLEEVEC [Suspect]
     Indication: EOSINOPHILIA
     Dosage: UNK, DAILY
     Route: 048

REACTIONS (3)
  - Salivary gland calculus [Unknown]
  - Salivary gland pain [Unknown]
  - Sialoadenitis [Unknown]
